FAERS Safety Report 23658354 (Version 3)
Quarter: 2024Q2

REPORT INFORMATION
  Report Type: Spontaneous
  Country: US (occurrence: US)
  Receive Date: 20240321
  Receipt Date: 20240619
  Transmission Date: 20240716
  Serious: No
  Sender: FDA-Public Use
  Company Number: US-CTI BIOPHARMA-2024US04496

PATIENT
  Age: 87 Year
  Sex: Female

DRUGS (2)
  1. VONJO [Suspect]
     Active Substance: PACRITINIB
     Indication: Myelofibrosis
     Dosage: 100 MG, BID
     Route: 048
     Dates: start: 20230707
  2. VONJO [Suspect]
     Active Substance: PACRITINIB
     Dosage: 100 MG, QOD
     Route: 048
     Dates: start: 20230707

REACTIONS (11)
  - Off label use [Not Recovered/Not Resolved]
  - Hypertension [Unknown]
  - Insomnia [Unknown]
  - Blood pressure abnormal [Unknown]
  - Fatigue [Unknown]
  - Asthenia [Unknown]
  - Feeling abnormal [Unknown]
  - Decreased appetite [Unknown]
  - Weight decreased [Unknown]
  - Gait disturbance [Unknown]
  - Loss of personal independence in daily activities [Unknown]

NARRATIVE: CASE EVENT DATE: 20230707
